FAERS Safety Report 4273567-4 (Version None)
Quarter: 2004Q1

REPORT INFORMATION
  Report Type: 
  Country: None (occurrence: None)
  Receive Date: 20040114
  Receipt Date: 20040109
  Transmission Date: 20041129
  Serious: Yes (Life-Threatening, Hospitalization, Other)
  Sender: FDA-Public Use
  Company Number: HQWYE157807JAN04

PATIENT
  Age: 37 Year
  Sex: Male
  Weight: 90 kg

DRUGS (1)
  1. MYLOTARG  (GEMTUZUMAB OZOGAMICIN, INJECTION) [Suspect]
     Indication: ACUTE MYELOID LEUKAEMIA
     Dosage: 6 MG/M^2 1 X PER 1 DAY, INTRAVENOUS
     Route: 042
     Dates: start: 20031219, end: 20031219

REACTIONS (3)
  - ASCITES [None]
  - NEUTROPENIA [None]
  - VENOOCCLUSIVE LIVER DISEASE [None]
